FAERS Safety Report 25906868 (Version 1)
Quarter: 2025Q4

REPORT INFORMATION
  Report Type: Spontaneous
  Country: US (occurrence: None)
  Receive Date: 20251009
  Receipt Date: 20251009
  Transmission Date: 20260118
  Serious: Yes (Hospitalization)
  Sender: FDA-CTU
  Company Number: None

PATIENT
  Sex: Female

DRUGS (2)
  1. DEFEROXAMINE MESYLATE [Suspect]
     Active Substance: DEFEROXAMINE MESYLATE
     Indication: Sickle cell disease
     Dosage: 2000 MG SE EVENT SUBCUTANOUS?
     Route: 058
     Dates: start: 20241115
  2. STERILE WATER SDV (20ML) [Concomitant]

REACTIONS (1)
  - Pain [None]
